FAERS Safety Report 11181876 (Version 3)
Quarter: 2015Q3

REPORT INFORMATION
  Report Type: Spontaneous
  Country: US (occurrence: US)
  Receive Date: 20150611
  Receipt Date: 20150723
  Transmission Date: 20151125
  Serious: Yes (Death)
  Sender: FDA-Public Use
  Company Number: CHPA2015US007127

PATIENT
  Age: 25 Year
  Sex: Female

DRUGS (1)
  1. VOLTAREN [Suspect]
     Active Substance: DICLOFENAC SODIUM
     Indication: ARTHRALGIA
     Route: 061

REACTIONS (8)
  - Arthralgia [Unknown]
  - Sciatic nerve injury [Unknown]
  - Drug ineffective for unapproved indication [Unknown]
  - Drug administered at inappropriate site [Unknown]
  - Colon cancer stage IV [Fatal]
  - Ovarian cancer [Fatal]
  - Gallbladder cancer [Fatal]
  - Product use issue [Unknown]

NARRATIVE: CASE EVENT DATE: 2014
